FAERS Safety Report 21062339 (Version 4)
Quarter: 2022Q4

REPORT INFORMATION
  Report Type: Spontaneous
  Country: US (occurrence: US)
  Receive Date: 20220711
  Receipt Date: 20221215
  Transmission Date: 20230113
  Serious: Yes (Other)
  Sender: FDA-Public Use
  Company Number: US-BRISTOL-MYERS SQUIBB COMPANY-2022-066274

PATIENT
  Age: 68 Year
  Sex: Male
  Weight: 54 kg

DRUGS (2)
  1. REVLIMID [Suspect]
     Active Substance: LENALIDOMIDE
     Indication: Plasma cell myeloma
     Dosage: ORAL (15 MILLIGRAM(S) FROM 12-MAY-2022 DAY 1-21 EVERY 28 DAYS  LOT NUMBERS: A3495A AND A3639A.
     Route: 048
     Dates: start: 20220512
  2. REVLIMID [Suspect]
     Active Substance: LENALIDOMIDE
     Dosage: ORAL (15 MILLIGRAM(S) FROM 12-MAY-2022 DAY 1-21 EVERY 28 DAYS  LOT NUMBERS: A3495A AND A3639A.
     Route: 048
     Dates: start: 20220512

REACTIONS (7)
  - Neuropathy peripheral [Not Recovered/Not Resolved]
  - Taste disorder [Not Recovered/Not Resolved]
  - Dyspepsia [Not Recovered/Not Resolved]
  - Red blood cell count abnormal [Recovering/Resolving]
  - White blood cell disorder [Recovering/Resolving]
  - Platelet count abnormal [Recovering/Resolving]
  - Sleep disorder [Not Recovered/Not Resolved]
